FAERS Safety Report 9276606 (Version 1)
Quarter: 2012Q4

REPORT INFORMATION
  Report Type: Spontaneous
  Country: US (occurrence: None)
  Receive Date: 20121109
  Receipt Date: 20121109
  Transmission Date: 20130627
  Serious: Yes (Other)
  Sender: FDA-Public Use
  Company Number: 2012S1000351

PATIENT
  Sex: Female

DRUGS (3)
  1. CUBICIN [Suspect]
     Indication: SEPSIS
  2. VANCOMYCIN [Concomitant]
  3. CLINDAMYCIN [Concomitant]

REACTIONS (2)
  - Myocardial infarction [None]
  - Off label use [None]
